FAERS Safety Report 8214601-6 (Version None)
Quarter: 2012Q1

REPORT INFORMATION
  Report Type: 
  Country: None (occurrence: None)
  Receive Date: 20120228
  Receipt Date: 20110330
  Transmission Date: 20120608
  Serious: Yes (Hospitalization, Other)
  Sender: FDA-Public Use
  Company Number: RB-24944-2011

PATIENT
  Age: 43 Year
  Sex: Female

DRUGS (1)
  1. SUBOXONE [Suspect]
     Indication: DRUG DEPENDENCE
     Dosage: (8 MG BID SUBLINGUAL
     Route: 060
     Dates: start: 20100301, end: 20110128

REACTIONS (3)
  - FALL [None]
  - LUMBAR VERTEBRAL FRACTURE [None]
  - BACK PAIN [None]
